FAERS Safety Report 4294140-8 (Version None)
Quarter: 2004Q1

REPORT INFORMATION
  Report Type: 
  Country: None (occurrence: None)
  Receive Date: 20040211
  Receipt Date: 20040205
  Transmission Date: 20041129
  Serious: Yes (Hospitalization)
  Sender: FDA-Public Use
  Company Number: 200401612

PATIENT
  Age: 88 Year
  Sex: Male
  Weight: 97.5234 kg

DRUGS (8)
  1. TYLENOL [Suspect]
     Indication: ARTHRALGIA
     Dosage: 650 MG Q4H PO
     Route: 048
  2. LASIX [Suspect]
  3. TYLENOL W/ CODEINE NO. 3 [Concomitant]
  4. EXCEDRIN (MIGRAINE) [Concomitant]
  5. ROBITUSSIN (GUAIFENESIN) [Concomitant]
  6. K-DUR 10 [Concomitant]
  7. SINGU;AIR (MONTELUKAST SODIUM) [Concomitant]
  8. OXYGEN [Concomitant]

REACTIONS (8)
  - DELIRIUM [None]
  - DISORIENTATION [None]
  - ELECTROLYTE IMBALANCE [None]
  - EYE REDNESS [None]
  - EYE SWELLING [None]
  - NASOPHARYNGITIS [None]
  - PNEUMONIA [None]
  - PULMONARY OEDEMA [None]
